FAERS Safety Report 7217261-6 (Version None)
Quarter: 2011Q1

REPORT INFORMATION
  Report Type: 
  Country: None (occurrence: None)
  Receive Date: 20110110
  Receipt Date: 20101230
  Transmission Date: 20110831
  Serious: Yes (Hospitalization)
  Sender: FDA-Public Use
  Company Number: GB-US-EMD SERONO, INC.-7033941

PATIENT
  Sex: Female

DRUGS (2)
  1. GONAL-F [Suspect]
     Indication: IN VITRO FERTILISATION
     Dates: start: 20100101
  2. CHORIONIC GONADOTROPIN [Concomitant]
     Indication: IN VITRO FERTILISATION
     Dates: start: 20101213, end: 20101213

REACTIONS (2)
  - DYSURIA [None]
  - OVARIAN HYPERSTIMULATION SYNDROME [None]
